FAERS Safety Report 8826450 (Version 1)
Quarter: 2012Q4

REPORT INFORMATION
  Report Type: 
  Country: US (occurrence: US)
  Receive Date: 20121005
  Receipt Date: 20121005
  Transmission Date: 20130627
  Serious: No
  Sender: FDA-Public Use
  Company Number: US-BAUSCH-BL-2012-000659

PATIENT
  Age: 48 Year
  Sex: Female

DRUGS (2)
  1. ZIRGAN [Suspect]
     Indication: EYE INFLAMMATION
     Dosage: 1 Drop; Once; Left eye
     Route: 047
     Dates: start: 20120825, end: 20120825
  2. ZIRGAN [Suspect]
     Indication: OFF LABEL USE

REACTIONS (1)
  - Eye irritation [Recovered/Resolved]
